FAERS Safety Report 8964319 (Version 1)
Quarter: 2012Q4

REPORT INFORMATION
  Report Type: 
  Country: US (occurrence: US)
  Receive Date: 20121214
  Receipt Date: 20121214
  Transmission Date: 20130627
  Serious: No
  Sender: FDA-Public Use
  Company Number: US-GLAXOSMITHKLINE-A0967169A

PATIENT
  Age: 83 Year
  Sex: Male

DRUGS (4)
  1. AVODART [Suspect]
     Indication: PROSTATOMEGALY
     Route: 048
     Dates: start: 201201
  2. BENICAR [Concomitant]
  3. BABY ASPIRIN [Concomitant]
  4. LIPITOR [Concomitant]

REACTIONS (1)
  - Rhinorrhoea [Unknown]
